FAERS Safety Report 17151681 (Version 1)
Quarter: 2019Q4

REPORT INFORMATION
  Report Type: Spontaneous
  Country: US (occurrence: US)
  Receive Date: 20191213
  Receipt Date: 20191213
  Transmission Date: 20200122
  Serious: Yes (Hospitalization, Other)
  Sender: FDA-Public Use
  Company Number: US-PFIZER INC-2019535699

PATIENT
  Age: 61 Year
  Sex: Female
  Weight: 134.2 kg

DRUGS (5)
  1. REMODULIN [Suspect]
     Active Substance: TREPROSTINIL
     Dosage: 42 ML, 1X/DAY [60 NG/KG/MIN,42 ML/DAY]
     Route: 042
     Dates: start: 20190821
  2. REMODULIN [Suspect]
     Active Substance: TREPROSTINIL
     Indication: PULMONARY ARTERIAL HYPERTENSION
     Dosage: 0.060 UG/KG, UNK
     Route: 042
     Dates: start: 20180426
  3. OPSUMIT [Suspect]
     Active Substance: MACITENTAN
     Dosage: UNK
  4. SILDENAFIL CITRATE. [Suspect]
     Active Substance: SILDENAFIL CITRATE
     Dosage: UNK
  5. REMODULIN [Suspect]
     Active Substance: TREPROSTINIL
     Dosage: 0.047 UNK, UNK
     Route: 042

REACTIONS (9)
  - Hypertension [Unknown]
  - Hypotension [Unknown]
  - Diarrhoea [Recovering/Resolving]
  - Weight decreased [Recovering/Resolving]
  - Blood pressure abnormal [Recovering/Resolving]
  - Encephalopathy [Unknown]
  - Pulmonary arterial hypertension [Not Recovered/Not Resolved]
  - Vomiting [Recovering/Resolving]
  - Nausea [Recovering/Resolving]

NARRATIVE: CASE EVENT DATE: 2019
